FAERS Safety Report 9217277 (Version 5)
Quarter: 2013Q3

REPORT INFORMATION
  Report Type: Report from Study
  Country: FR (occurrence: FR)
  Receive Date: 20130408
  Receipt Date: 20130802
  Transmission Date: 20140515
  Serious: Yes (Other)
  Sender: FDA-Public Use
  Company Number: FR-ROCHE-1209022

PATIENT
  Age: 39 Year
  Sex: Female
  Weight: 59.5 kg

DRUGS (25)
  1. TRASTUZUMAB [Suspect]
     Indication: BREAST CANCER
     Dosage: DATE OF LAST DOSE PRIOR TO SAE: 11/MAR/2013
     Route: 042
     Dates: start: 20130311
  2. TRASTUZUMAB [Suspect]
     Dosage: RESTARTED 09 APR 2013
     Route: 042
  3. DOCETAXEL [Suspect]
     Indication: BREAST CANCER
     Dosage: DATE OF LAST DOSE PRIOR TO SAE: 11/MAR/2013
     Route: 042
     Dates: start: 20130311
  4. DOCETAXEL [Suspect]
     Route: 042
     Dates: start: 20130409
  5. MEDROL [Concomitant]
     Indication: PREMEDICATION
     Route: 065
     Dates: start: 20130311, end: 20130508
  6. BROMAZEPAM [Concomitant]
     Route: 065
     Dates: start: 2012
  7. ZOLPIDEM [Concomitant]
     Route: 065
     Dates: start: 201210
  8. DAFALGAN [Concomitant]
     Route: 065
     Dates: start: 2012, end: 20130505
  9. KLIPAL [Concomitant]
     Route: 065
     Dates: start: 2012, end: 20130505
  10. BI-PROFENID [Concomitant]
     Route: 065
     Dates: start: 2012, end: 20130505
  11. INEXIUM [Concomitant]
     Route: 065
     Dates: start: 20130218
  12. OMEPRAZOLE [Concomitant]
     Route: 065
     Dates: start: 201304, end: 20130616
  13. ESOMEPRAZOLE [Concomitant]
     Route: 065
     Dates: start: 20130617
  14. GABAPENTINE EG [Concomitant]
     Route: 065
     Dates: start: 20130408, end: 20130422
  15. NEULASTA [Concomitant]
     Route: 065
     Dates: start: 201304, end: 201305
  16. TITANOREINE (CARRAGHENATES, TITANIUM DIOXIDE, ZINC OXIDE) [Concomitant]
     Route: 065
     Dates: start: 20130605
  17. SPAGULAX [Concomitant]
     Route: 065
     Dates: start: 20130605
  18. TRAMADOL [Concomitant]
     Route: 065
     Dates: start: 20130505
  19. PARACETAMOL/CODEINE [Concomitant]
     Route: 065
     Dates: start: 20130523, end: 20130523
  20. LEVOCARNIL [Concomitant]
     Route: 065
     Dates: start: 20130521, end: 20130604
  21. FLUCONAZOLE [Concomitant]
     Route: 065
     Dates: start: 20130521, end: 201305
  22. OXYNORMORO [Concomitant]
     Route: 065
     Dates: start: 201304, end: 20130506
  23. POLARAMINE [Concomitant]
     Route: 065
     Dates: start: 20130409, end: 20130506
  24. PERTUZUMAB [Suspect]
     Indication: BREAST CANCER
     Dosage: DAE OF LAST DOSE PRIOR TO SAE: 11/MAR/2013
     Route: 042
     Dates: start: 20130311
  25. PERTUZUMAB [Suspect]
     Dosage: MAINTENANCE DOSE
     Route: 042

REACTIONS (1)
  - Toxic skin eruption [Recovered/Resolved]
